FAERS Safety Report 7440460-5 (Version None)
Quarter: 2011Q2

REPORT INFORMATION
  Report Type: 
  Country: None (occurrence: None)
  Receive Date: 20110427
  Receipt Date: 20110419
  Transmission Date: 20111010
  Serious: Yes (Other)
  Sender: FDA-Public Use
  Company Number: B0714068A

PATIENT
  Age: 57 Year
  Sex: Female
  Weight: 105.5 kg

DRUGS (3)
  1. RAMIPRIL [Concomitant]
  2. ALLI [Suspect]
     Route: 048
     Dates: start: 20110401, end: 20110401
  3. ETHINYLOESTRADIOL [Concomitant]

REACTIONS (4)
  - HEART RATE INCREASED [None]
  - RASH [None]
  - ANXIETY [None]
  - TONGUE ULCERATION [None]
